FAERS Safety Report 6047088-2 (Version None)
Quarter: 2009Q1

REPORT INFORMATION
  Report Type: 
  Country: None (occurrence: None)
  Receive Date: 20090121
  Receipt Date: 20080820
  Transmission Date: 20090719
  Serious: No
  Sender: FDA-Public Use
  Company Number: A-US2008-21642

PATIENT
  Age: 24 Year
  Sex: Female
  Weight: 47.2 kg

DRUGS (10)
  1. TRACLEER [Suspect]
     Indication: PULMONARY ARTERIAL HYPERTENSION
     Dosage: 62.5 MG, BID, ORAL
     Route: 048
     Dates: start: 20080710, end: 20080807
  2. PREDNISONE TAB [Concomitant]
  3. PLAQUENIL [Concomitant]
  4. NALDECON (PHENYLEPHRINE HYDROCHLORIDE, CARBINOXAMINE MALEATE, PHENYLPR [Concomitant]
  5. ENALAPRIL MALEATE [Concomitant]
  6. COUMADIN [Concomitant]
  7. AZATHIOPRINE [Concomitant]
  8. FOSAMAX [Concomitant]
  9. CALCIUM W/VITAMIN D NOS (VITAMIN D NOS, CALCIUM) [Concomitant]
  10. FERROUS SULFATE TAB [Concomitant]

REACTIONS (2)
  - DIARRHOEA [None]
  - RASH [None]
